FAERS Safety Report 9328354 (Version 1)
Quarter: 2013Q2

REPORT INFORMATION
  Report Type: Spontaneous
  Country: US (occurrence: US)
  Receive Date: 20130604
  Receipt Date: 20130604
  Transmission Date: 20140414
  Serious: Yes (Other)
  Sender: FDA-Public Use
  Company Number: US-SANOFI-AVENTIS-2012SA048612

PATIENT
  Age: 78 Year
  Sex: Male

DRUGS (2)
  1. LANTUS [Suspect]
     Dosage: DOSE:26 UNIT(S)
     Route: 058
     Dates: start: 2010
  2. SOLOSTAR [Suspect]
     Dates: start: 2010

REACTIONS (1)
  - Hypoglycaemic coma [Unknown]
